FAERS Safety Report 8618325-2 (Version None)
Quarter: 2012Q3

REPORT INFORMATION
  Report Type: 
  Country: None (occurrence: None)
  Receive Date: 20120824
  Receipt Date: 20120816
  Transmission Date: 20120928
  Serious: No
  Sender: FDA-Public Use
  Company Number: US-BIOGENIDEC-2012BI030069

PATIENT
  Age: 50 Year
  Sex: Female

DRUGS (1)
  1. TYSABRI [Suspect]
     Indication: MULTIPLE SCLEROSIS
     Route: 042
     Dates: start: 20120731

REACTIONS (8)
  - MUSCLE TIGHTNESS [None]
  - PAIN IN EXTREMITY [None]
  - FATIGUE [None]
  - PAIN [None]
  - PARAESTHESIA [None]
  - MYALGIA [None]
  - HYPOAESTHESIA [None]
  - ARTHRALGIA [None]
